FAERS Safety Report 13785120 (Version 2)
Quarter: 2017Q4

REPORT INFORMATION
  Report Type: Spontaneous
  Country: US (occurrence: US)
  Receive Date: 20170724
  Receipt Date: 20171024
  Transmission Date: 20180320
  Serious: No
  Sender: FDA-Public Use
  Company Number: US-IMPAX LABORATORIES, INC-2017-IPXL-01662

PATIENT
  Sex: Male

DRUGS (2)
  1. RYTARY [Suspect]
     Active Substance: CARBIDOPA\LEVODOPA
     Indication: PARKINSON^S DISEASE
     Dosage: 61.25/245 MG, ONE CAPSULE, THREE TIMES A DAY
     Route: 065
     Dates: start: 201612
  2. RYTARY [Suspect]
     Active Substance: CARBIDOPA\LEVODOPA
     Dosage: 61.25/245 MG, 1 DF, 3 /DAY + 23.75/95 MG, 1 DF, 3 /DAY
     Route: 065
     Dates: start: 20170516

REACTIONS (1)
  - Drug effect incomplete [Unknown]
